FAERS Safety Report 19275210 (Version 2)
Quarter: 2021Q2

REPORT INFORMATION
  Report Type: Report from Study
  Country: US (occurrence: US)
  Receive Date: 20210519
  Receipt Date: 20210525
  Transmission Date: 20210717
  Serious: Yes (Other)
  Sender: FDA-Public Use
  Company Number: US-BRISTOL-MYERS SQUIBB COMPANY-BMS-2021-048427

PATIENT
  Age: 90 Year
  Sex: Male
  Weight: 97.51 kg

DRUGS (5)
  1. APIXABAN [Suspect]
     Active Substance: APIXABAN
     Dosage: 5 MILLIGRAM, BID
     Route: 048
     Dates: start: 202005
  2. EPIPEN [Concomitant]
     Active Substance: EPINEPHRINE
     Indication: ARTHROPOD STING
     Dosage: AS NEEDED
     Route: 065
  3. APIXABAN [Suspect]
     Active Substance: APIXABAN
     Indication: AORTIC VALVE REPLACEMENT
     Dosage: 2.5 MILLIGRAM, BID
     Route: 048
     Dates: start: 201904
  4. FUROSEMIDE. [Concomitant]
     Active Substance: FUROSEMIDE
     Indication: PRODUCT USED FOR UNKNOWN INDICATION
     Dosage: 40MG AS NEEDED
     Route: 065
  5. ZESTRIL [Concomitant]
     Active Substance: LISINOPRIL
     Indication: BLOOD PRESSURE MEASUREMENT
     Dosage: AS NEEDED
     Route: 065

REACTIONS (6)
  - Decreased appetite [Unknown]
  - Intentional product use issue [Unknown]
  - Fall [Unknown]
  - Head injury [Unknown]
  - Weight decreased [Unknown]
  - Muscular weakness [Unknown]
